FAERS Safety Report 7654444-5 (Version None)
Quarter: 2011Q3

REPORT INFORMATION
  Report Type: 
  Country: None (occurrence: None)
  Receive Date: 20110803
  Receipt Date: 20110728
  Transmission Date: 20111222
  Serious: Yes (Other)
  Sender: FDA-Public Use
  Company Number: CA-PFIZER INC-2011171180

PATIENT
  Sex: Male

DRUGS (8)
  1. RAMIPRIL [Concomitant]
     Dosage: UNK
  2. LYRICA [Suspect]
     Indication: PAIN
     Dosage: 225MG (3 X 75 MG), DAILY
  3. CELEBREX [Concomitant]
     Indication: PAIN
     Dosage: UNK
  4. ATIVAN [Concomitant]
     Indication: NERVOUSNESS
     Dosage: UNK
  5. NEXIUM [Concomitant]
     Dosage: UNK
  6. LIPITOR [Concomitant]
     Indication: BLOOD CHOLESTEROL INCREASED
     Dosage: UNK
  7. ZOPICLONE [Concomitant]
     Dosage: UNK
  8. NASONEX [Concomitant]
     Dosage: UNK

REACTIONS (3)
  - HORMONE LEVEL ABNORMAL [None]
  - SPERM CONCENTRATION ZERO [None]
  - ANORGASMIA [None]
